FAERS Safety Report 20529384 (Version 1)
Quarter: 2022Q1

REPORT INFORMATION
  Report Type: Report from Study
  Country: AT (occurrence: AT)
  Receive Date: 20220228
  Receipt Date: 20220228
  Transmission Date: 20220423
  Serious: Yes (Hospitalization)
  Sender: FDA-Public Use
  Company Number: AT-ABBVIE-22K-009-4292388-00

PATIENT
  Age: 81 Year
  Sex: Female

DRUGS (3)
  1. CARBIDOPA\LEVODOPA [Suspect]
     Active Substance: CARBIDOPA\LEVODOPA
     Indication: Parkinson^s disease
     Dosage: 16 THERAPY: MD: 8.0ML, CR DAYTIME: 2.0ML, ED: 1.0ML
     Route: 050
     Dates: start: 20220209, end: 202202
  2. CARBIDOPA\LEVODOPA [Suspect]
     Active Substance: CARBIDOPA\LEVODOPA
     Dosage: 16 THERAPY: MD: 6.0ML, CR DAYTIME: 1.5ML, ED: 1.0ML
     Route: 050
     Dates: start: 202202
  3. CARBIDOPA\LEVODOPA [Suspect]
     Active Substance: CARBIDOPA\LEVODOPA
     Dosage: 16 THERAPY: MD: 6.0ML, CR DAYTIME: 1.7ML, ED: 1.0ML
     Route: 050
     Dates: start: 202202

REACTIONS (4)
  - Dementia [Not Recovered/Not Resolved]
  - Hyperkinesia [Recovered/Resolved]
  - Akinesia [Not Recovered/Not Resolved]
  - Stoma site pain [Recovered/Resolved]

NARRATIVE: CASE EVENT DATE: 20220201
